FAERS Safety Report 8630179 (Version 2)
Quarter: 2013Q1

REPORT INFORMATION
  Report Type: Spontaneous
  Country: US (occurrence: US)
  Receive Date: 20120622
  Receipt Date: 20130114
  Transmission Date: 20140127
  Serious: No
  Sender: FDA-Public Use
  Company Number: US-ASTRAZENECA-2012SE36223

PATIENT
  Age: 58 Year
  Sex: Female

DRUGS (5)
  1. NEXIUM [Suspect]
     Route: 048
     Dates: start: 20020508
  2. PROTONIX [Concomitant]
     Route: 048
     Dates: start: 20010827
  3. TOPROL XL [Concomitant]
     Route: 048
     Dates: start: 20010914
  4. LOSARTAN POTASSIUM [Concomitant]
     Route: 048
     Dates: start: 20110725
  5. FLUOXETINE HCL [Concomitant]
     Route: 048
     Dates: start: 20110601

REACTIONS (2)
  - Osteoporosis [Unknown]
  - Multiple fractures [Unknown]
